FAERS Safety Report 8306141-0 (Version None)
Quarter: 2012Q2

REPORT INFORMATION
  Report Type: 
  Country: None (occurrence: None)
  Receive Date: 20120423
  Receipt Date: 20120413
  Transmission Date: 20120825
  Serious: Yes (Hospitalization)
  Sender: FDA-Public Use
  Company Number: SK-ABBOTT-12P-260-0917721-00

PATIENT
  Sex: Female
  Weight: 78 kg

DRUGS (9)
  1. METHOTREXATE [Concomitant]
     Indication: RHEUMATOID ARTHRITIS
     Route: 048
     Dates: start: 20020315, end: 20041123
  2. CHLOROQUINE PHOSPHATE [Concomitant]
     Indication: RHEUMATOID ARTHRITIS
     Route: 048
     Dates: start: 20010827, end: 20011026
  3. METHOTREXATE [Concomitant]
     Dates: start: 20050218
  4. IBUPROFEN [Concomitant]
     Indication: RHEUMATOID ARTHRITIS
     Route: 048
     Dates: start: 20010827
  5. FOLIC ACID [Concomitant]
     Indication: PROPHYLAXIS
  6. HUMIRA [Suspect]
     Indication: RHEUMATOID ARTHRITIS
     Route: 058
     Dates: start: 20040315, end: 20111114
  7. FOLIC ACID [Concomitant]
     Indication: ADVERSE DRUG REACTION
     Dates: start: 20020322
  8. METHOTREXATE [Concomitant]
     Route: 048
     Dates: start: 20041124, end: 20050215
  9. RILMENIDINE [Concomitant]
     Indication: HYPERTENSION
     Route: 048
     Dates: start: 20071126

REACTIONS (1)
  - OVARIAN CANCER [None]
